FAERS Safety Report 17351244 (Version 1)
Quarter: 2020Q1

REPORT INFORMATION
  Report Type: Spontaneous
  Country: US (occurrence: US)
  Receive Date: 20200130
  Receipt Date: 20200130
  Transmission Date: 20200409
  Serious: No
  Sender: FDA-Public Use
  Company Number: US-009507513-2001USA010326

PATIENT
  Age: 25 Year
  Sex: Female
  Weight: 48.08 kg

DRUGS (1)
  1. NEXPLANON [Suspect]
     Active Substance: ETONOGESTREL
     Dosage: 1 IMPLANT ON THE LEFT ARM, EVERY 3 YEARS
     Route: 059
     Dates: start: 20191001

REACTIONS (3)
  - No adverse event [Unknown]
  - Product quality issue [Unknown]
  - Device kink [Not Recovered/Not Resolved]

NARRATIVE: CASE EVENT DATE: 20200127
